FAERS Safety Report 10567359 (Version 2)
Quarter: 2015Q1

REPORT INFORMATION
  Report Type: Spontaneous
  Country: IT (occurrence: IT)
  Receive Date: 20141106
  Receipt Date: 20150209
  Transmission Date: 20150720
  Serious: Yes (Hospitalization, Other)
  Sender: FDA-Public Use
  Company Number: IT-ROCHE-1486290

PATIENT
  Age: 76 Year
  Sex: Male
  Weight: 71 kg

DRUGS (2)
  1. TORVAST [Concomitant]
     Active Substance: ATORVASTATIN
     Indication: DYSLIPIDAEMIA
     Dosage: 20 30 TABLETS 20 MG
     Route: 048
  2. RIVOTRIL [Suspect]
     Active Substance: CLONAZEPAM
     Indication: NEURALGIA
     Dosage: 2.5 MG/ML ORAL DROPS SOLUTION
     Route: 048
     Dates: start: 20140816, end: 20140816

REACTIONS (7)
  - Overdose [Unknown]
  - Atonic seizures [Recovered/Resolved]
  - Multiple injuries [Recovered/Resolved]
  - Rhabdomyolysis [Recovered/Resolved]
  - Drug administration error [Unknown]
  - Fall [Unknown]
  - Off label use [Unknown]

NARRATIVE: CASE EVENT DATE: 20140816
